FAERS Safety Report 18915541 (Version 1)
Quarter: 2021Q1

REPORT INFORMATION
  Report Type: Report from Study
  Country: DE (occurrence: DE)
  Receive Date: 20210219
  Receipt Date: 20210219
  Transmission Date: 20210420
  Serious: Yes (Hospitalization, Other)
  Sender: FDA-Public Use
  Company Number: NVSC2021DE030380

PATIENT
  Age: 79 Year
  Sex: Female
  Weight: 65 kg

DRUGS (3)
  1. LETROZOLE. [Suspect]
     Active Substance: LETROZOLE
     Indication: BREAST CANCER METASTATIC
     Dosage: 2.5 MG (DAY 1 ? 28)
     Route: 048
     Dates: start: 20190515
  2. PALBOCICLIB [Suspect]
     Active Substance: PALBOCICLIB
     Indication: BREAST CANCER METASTATIC
     Dosage: 100 MG (DAY 1 ? 21)
     Route: 048
     Dates: start: 20190515
  3. METOHEXAL [Concomitant]
     Active Substance: METOPROLOL
     Indication: HYPERTENSION
     Dosage: UNK
     Route: 065

REACTIONS (4)
  - Circulatory collapse [Unknown]
  - Gastric haemorrhage [Recovered/Resolved]
  - General physical health deterioration [Unknown]
  - Asthenia [Unknown]

NARRATIVE: CASE EVENT DATE: 20201218
